FAERS Safety Report 19459314 (Version 2)
Quarter: 2021Q3

REPORT INFORMATION
  Report Type: Report from Study
  Country: US (occurrence: US)
  Receive Date: 20210624
  Receipt Date: 20210712
  Transmission Date: 20211014
  Serious: Yes (Hospitalization)
  Sender: FDA-Public Use
  Company Number: US-ROCHE-2430916

PATIENT
  Age: 49 Year
  Sex: Female
  Weight: 77.1 kg

DRUGS (37)
  1. METHYLPREDNISOLONE. [Concomitant]
     Active Substance: METHYLPREDNISOLONE
     Indication: PREMEDICATION
     Dosage: SUBSEQUENT DOSES: 05/NOV/2012, 08/APR/2013, 23/APR/2013, 23/SEP/2013, 08/OCT/2013, 10/MAR/2014, 25/M
     Dates: start: 20121023
  2. AMBIEN [Concomitant]
     Active Substance: ZOLPIDEM TARTRATE
     Indication: COVID-19
     Dates: start: 20210224, end: 202102
  3. CIPROFLOXACIN. [Suspect]
     Active Substance: CIPROFLOXACIN
     Indication: PYREXIA
     Route: 065
     Dates: start: 20161107, end: 20161112
  4. TYLENOL [Concomitant]
     Active Substance: ACETAMINOPHEN
     Indication: PAIN IN EXTREMITY
     Dates: start: 2011
  5. MYRBETRIQ [Concomitant]
     Active Substance: MIRABEGRON
     Dates: start: 20191126, end: 20191210
  6. VANCOMYCIN [Concomitant]
     Active Substance: VANCOMYCIN
     Indication: DIARRHOEA
     Dates: start: 20191101, end: 20191114
  7. BACLOFEN. [Concomitant]
     Active Substance: BACLOFEN
     Indication: MUSCLE SPASTICITY
     Dates: start: 2016
  8. BACLOFEN. [Concomitant]
     Active Substance: BACLOFEN
     Dates: start: 2016
  9. PLACEBO [Suspect]
     Active Substance: UNSPECIFIED INGREDIENT
     Indication: PRIMARY PROGRESSIVE MULTIPLE SCLEROSIS
     Dosage: SUBSEQUENT DOSES OF RECEIVED ON 05/NOV/2012, 08/APR/2013, 23/APR/2013, 08/OCT/2013, 23/SEP/2013, 10/
     Route: 042
     Dates: start: 20121023, end: 20151115
  10. ALPHA LIPOIC ACID [Concomitant]
     Active Substance: .ALPHA.-LIPOIC ACID
     Dosage: SUPPLEMENT
     Dates: start: 201705
  11. VESICARE [Concomitant]
     Active Substance: SOLIFENACIN SUCCINATE
     Dosage: BLADDER SYMPTOMS
     Dates: start: 20140812, end: 20191125
  12. DIPHENHYDRAMINE. [Concomitant]
     Active Substance: DIPHENHYDRAMINE
     Indication: PREMEDICATION
     Dosage: SUBSEQUENT DOSES: 05/NOV/2012, 08/APR/2013, 23/APR/2013, 23/SEP/2013, 08/OCT/2013, 10/MAR/2014, 25/M
     Dates: start: 20121023
  13. BIOTIN [Concomitant]
     Active Substance: BIOTIN
     Dosage: SUPPLEMENT
     Dates: start: 20160701
  14. ZYRTEC (UNITED STATES) [Concomitant]
     Indication: SEASONAL ALLERGY
     Dates: start: 2002
  15. BENADRYL [Concomitant]
     Active Substance: DIPHENHYDRAMINE HYDROCHLORIDE
     Indication: COVID-19
     Dates: start: 20210204, end: 202102
  16. ZOLOFT [Concomitant]
     Active Substance: SERTRALINE HYDROCHLORIDE
     Indication: PERSISTENT DEPRESSIVE DISORDER
     Dates: start: 201110
  17. VESICARE [Concomitant]
     Active Substance: SOLIFENACIN SUCCINATE
     Dosage: BLADDER SYMPTOMS
     Dates: start: 20191211
  18. ACETAMINOPHEN. [Concomitant]
     Active Substance: ACETAMINOPHEN
     Indication: PREMEDICATION
     Dosage: SUBSEQUENT DOSE: 05/NOV/2012
     Dates: start: 20121023
  19. VANCOMYCIN [Concomitant]
     Active Substance: VANCOMYCIN
     Dates: start: 20191122, end: 20191128
  20. VANCOMYCIN [Concomitant]
     Active Substance: VANCOMYCIN
     Dates: start: 20191129, end: 20191205
  21. CIPROFLOXACIN. [Suspect]
     Active Substance: CIPROFLOXACIN
     Route: 065
     Dates: start: 20190725, end: 20190804
  22. NORVASC [Concomitant]
     Active Substance: AMLODIPINE BESYLATE
     Dates: start: 20191213, end: 20200131
  23. NORVASC [Concomitant]
     Active Substance: AMLODIPINE BESYLATE
     Dates: start: 20200625, end: 20201130
  24. LOSARTAN. [Concomitant]
     Active Substance: LOSARTAN
     Indication: HYPERTENSION
     Dates: start: 20200201, end: 20200624
  25. VANCOMYCIN [Concomitant]
     Active Substance: VANCOMYCIN
     Dates: start: 20191115, end: 20191121
  26. OCRELIZUMAB. [Suspect]
     Active Substance: OCRELIZUMAB
     Indication: PRIMARY PROGRESSIVE MULTIPLE SCLEROSIS
     Dosage: IV INFUSIONS OF OCRELIZUMAB 300 MG (260ML) FOR CYCLE 1 AND SINGLE IV INFUSION OF OCRELIZUMAB 600 MG
     Route: 042
     Dates: start: 20151116
  27. BACLOFEN. [Concomitant]
     Active Substance: BACLOFEN
     Dates: start: 20140826, end: 2016
  28. VESICARE [Concomitant]
     Active Substance: SOLIFENACIN SUCCINATE
     Dosage: BLADDER SYMPTOMS
     Dates: start: 20131024, end: 20140811
  29. TYLENOL [Concomitant]
     Active Substance: ACETAMINOPHEN
     Indication: PREMEDICATION
     Dosage: SUBSEQUENT DOSE: 23/APR/2013, 23/SEP/2013, 08/OCT/2013, 10/MAR/2014, 25/MAR/2014, 25/AUG/2014, 10/SE
     Dates: start: 20130408
  30. BENADRYL [Concomitant]
     Active Substance: DIPHENHYDRAMINE HYDROCHLORIDE
     Indication: PREMEDICATION
     Dates: start: 20201214
  31. AMLODIPINE [Concomitant]
     Active Substance: AMLODIPINE BESYLATE
     Indication: HYPERTENSION
     Dates: start: 20201201
  32. IRBESARTAN. [Concomitant]
     Active Substance: IRBESARTAN
     Indication: HYPERTENSION
     Dates: start: 20201201
  33. VANCOMYCIN [Concomitant]
     Active Substance: VANCOMYCIN
     Dates: start: 20191206, end: 20191219
  34. VANCOMYCIN [Concomitant]
     Active Substance: VANCOMYCIN
     Dates: start: 20191012, end: 20191021
  35. CIPROFLOXACIN. [Suspect]
     Active Substance: CIPROFLOXACIN
     Indication: URINARY TRACT INFECTION
     Route: 065
     Dates: start: 201707, end: 201708
  36. NORVASC [Concomitant]
     Active Substance: AMLODIPINE BESYLATE
     Indication: HYPERTENSION
     Dates: start: 20190916, end: 20191016
  37. NORVASC [Concomitant]
     Active Substance: AMLODIPINE BESYLATE
     Dates: start: 20200201, end: 20200624

REACTIONS (1)
  - Clostridium difficile infection [Recovered/Resolved]

NARRATIVE: CASE EVENT DATE: 20190902
